FAERS Safety Report 24217444 (Version 1)
Quarter: 2024Q3

REPORT INFORMATION
  Report Type: Other
  Country: JP (occurrence: JP)
  Receive Date: 20240816
  Receipt Date: 20240816
  Transmission Date: 20241017
  Serious: Yes (Hospitalization, Other)
  Sender: BIONPHARMA
  Company Number: JP-Bion-013674

PATIENT
  Age: 9 Year
  Sex: Female

DRUGS (2)
  1. NAPROXEN SODIUM [Suspect]
     Active Substance: NAPROXEN\NAPROXEN SODIUM
     Indication: Osteomyelitis chronic
     Dosage: 150 MG/DAY
  2. NAPROXEN SODIUM [Suspect]
     Active Substance: NAPROXEN\NAPROXEN SODIUM
     Indication: Erythema nodosum
     Dosage: 150 MG/DAY

REACTIONS (2)
  - Drug-induced liver injury [Recovering/Resolving]
  - Drug ineffective for unapproved indication [Not Recovered/Not Resolved]
